FAERS Safety Report 9306012 (Version 2)
Quarter: 2013Q3

REPORT INFORMATION
  Report Type: Spontaneous
  Country: US (occurrence: US)
  Receive Date: 20130523
  Receipt Date: 20130711
  Transmission Date: 20140515
  Serious: Yes (Hospitalization, Other)
  Sender: FDA-Public Use
  Company Number: US-FRI-1000045234

PATIENT
  Age: 53 Year
  Sex: Male

DRUGS (6)
  1. NAMENDA [Suspect]
     Indication: DEMENTIA
     Dosage: 5MG
     Route: 048
     Dates: start: 20130206
  2. DONEPEZIL [Concomitant]
     Indication: DEMENTIA
     Dosage: DAILY
     Dates: start: 20130208
  3. OXYCODONE [Concomitant]
     Indication: PAIN
     Dosage: AS NEEDED
     Dates: start: 201305
  4. LACTOSE [Concomitant]
     Dosage: DAILY
  5. ASA [Concomitant]
     Dosage: 81MG
  6. REMERON [Concomitant]
     Dosage: 15MG

REACTIONS (5)
  - Pneumonia [Recovered/Resolved]
  - Fall [Recovered/Resolved]
  - Femoral neck fracture [Recovered/Resolved]
  - Hostility [Recovered/Resolved]
  - Aggression [Recovered/Resolved]
